FAERS Safety Report 4951168-X (Version None)
Quarter: 2006Q1

REPORT INFORMATION
  Report Type: 
  Country: None (occurrence: None)
  Receive Date: 20060315
  Receipt Date: 20060303
  Transmission Date: 20060701
  Serious: Yes (Death, Hospitalization)
  Sender: FDA-Public Use
  Company Number: HQWYE140903MAR06

PATIENT
  Age: 80 Year
  Sex: Male

DRUGS (9)
  1. CEFIXIME CHEWABLE [Suspect]
     Indication: BRONCHITIS
     Route: 048
     Dates: start: 20060102, end: 20060103
  2. FENOFIBRATE [Concomitant]
  3. ATENOLOL [Concomitant]
  4. ZESTORETIC [Concomitant]
  5. OMEPRAZOLE [Concomitant]
  6. PREVISCAN (FLUINDIONE,) [Concomitant]
     Route: 048
     Dates: end: 20060108
  7. ZITHROMAX [Suspect]
     Indication: BRONCHITIS
     Dosage: ORAL
     Route: 048
     Dates: start: 20051225, end: 20060101
  8. ALLOPURINOL [Concomitant]
  9. STILNOX (ZOLPIDEM) [Concomitant]

REACTIONS (7)
  - ACUTE RESPIRATORY FAILURE [None]
  - ANAEMIA [None]
  - CONDITION AGGRAVATED [None]
  - DRUG INTERACTION [None]
  - INTERNATIONAL NORMALISED RATIO INCREASED [None]
  - OVERDOSE [None]
  - PULMONARY HAEMORRHAGE [None]
